FAERS Safety Report 18393012 (Version 2)
Quarter: 2020Q4

REPORT INFORMATION
  Report Type: Spontaneous
  Country: US (occurrence: US)
  Receive Date: 20201016
  Receipt Date: 20201016
  Transmission Date: 20210114
  Serious: Yes (Hospitalization, Other)
  Sender: FDA-Public Use
  Company Number: US-PFIZER INC-2020396504

PATIENT
  Age: 34 Year
  Sex: Female

DRUGS (6)
  1. DIAZEPAM. [Suspect]
     Active Substance: DIAZEPAM
     Indication: DISTURBANCE IN ATTENTION
     Dosage: UNK, DAILY (BETWEEN 100 AND 160 MG)
  2. DIAZEPAM. [Suspect]
     Active Substance: DIAZEPAM
     Indication: DECREASED APPETITE
  3. DIAZEPAM. [Suspect]
     Active Substance: DIAZEPAM
     Indication: NERVOUSNESS
  4. DIAZEPAM. [Suspect]
     Active Substance: DIAZEPAM
     Indication: INSOMNIA
  5. DIAZEPAM. [Suspect]
     Active Substance: DIAZEPAM
     Indication: IRRITABILITY
     Dosage: 40 MG, DAILY
  6. AMOBARBITAL SODIUM/SECOBARBITAL SODIUM [Concomitant]
     Indication: SLEEP DISORDER
     Dosage: UNK (180 TO 200 MG AT NIGHT)

REACTIONS (5)
  - Off label use [Unknown]
  - Acute psychosis [Recovered/Resolved]
  - Product use in unapproved indication [Unknown]
  - Rebound psychosis [Recovered/Resolved]
  - Drug dependence [Recovered/Resolved]
